FAERS Safety Report 7983956-X (Version None)
Quarter: 2011Q4

REPORT INFORMATION
  Report Type: 
  Country: None (occurrence: None)
  Receive Date: 20111216
  Receipt Date: 20111214
  Transmission Date: 20120403
  Serious: No
  Sender: FDA-Public Use
  Company Number: US-BIOGENIDEC-2011BI047359

PATIENT
  Sex: Female

DRUGS (1)
  1. TYSABRI [Suspect]
     Indication: MULTIPLE SCLEROSIS
     Route: 042
     Dates: start: 20110719

REACTIONS (5)
  - TOOTH ABSCESS [None]
  - FATIGUE [None]
  - GAIT DISTURBANCE [None]
  - BALANCE DISORDER [None]
  - MEMORY IMPAIRMENT [None]
